FAERS Safety Report 7835557-1 (Version None)
Quarter: 2011Q4

REPORT INFORMATION
  Report Type: 
  Country: None (occurrence: None)
  Receive Date: 20111024
  Receipt Date: 20111018
  Transmission Date: 20120403
  Serious: Yes (Death, Hospitalization, Other)
  Sender: FDA-Public Use
  Company Number: PHHY2011NL39482

PATIENT
  Sex: Female

DRUGS (4)
  1. ZOMETA [Suspect]
     Dosage: 4 MG/ 5 ML, ONCE PER 28 DAYS
     Route: 042
     Dates: start: 20110408
  2. ZOMETA [Suspect]
     Indication: METASTASIS
     Dosage: 4 MG/ 5 ML, ONCE PER 28 DAYS
     Route: 042
     Dates: start: 20100924
  3. ZOMETA [Suspect]
     Dosage: 4 MG/5 ML, ONCE PER 28 DAYS
     Route: 042
     Dates: start: 20110826
  4. ZOMETA [Suspect]
     Dosage: 4 MG/ 5 ML, ONCE PER 28 DAYS
     Route: 042
     Dates: start: 20110923

REACTIONS (3)
  - DEATH [None]
  - PELVIC FRACTURE [None]
  - GENERAL PHYSICAL HEALTH DETERIORATION [None]
